FAERS Safety Report 4782407-6 (Version None)
Quarter: 2005Q3

REPORT INFORMATION
  Report Type: 
  Country: None (occurrence: None)
  Receive Date: 20050929
  Receipt Date: 20030626
  Transmission Date: 20060218
  Serious: No
  Sender: FDA-Public Use
  Company Number: US-GLAXOSMITHKLINE-A0414042A

PATIENT
  Age: 83 Year
  Sex: Female

DRUGS (5)
  1. COREG [Suspect]
     Indication: HYPERTENSION
     Dosage: 3.125MG TWICE PER DAY
     Route: 048
     Dates: start: 20030501
  2. MICARDIS [Concomitant]
  3. ALTACE [Concomitant]
  4. NORVASC [Concomitant]
  5. LASIX [Concomitant]

REACTIONS (1)
  - BLOOD PRESSURE INCREASED [None]
